FAERS Safety Report 16808765 (Version 1)
Quarter: 2019Q3

REPORT INFORMATION
  Report Type: Spontaneous
  Country: AT (occurrence: AT)
  Receive Date: 20190916
  Receipt Date: 20190916
  Transmission Date: 20191005
  Serious: Yes (Other)
  Sender: FDA-Public Use
  Company Number: AT-TEVA-2019-AT-1106343

PATIENT
  Age: 55 Year
  Sex: Male

DRUGS (1)
  1. ROSUVASTATIN. [Suspect]
     Active Substance: ROSUVASTATIN
     Dosage: 40MG

REACTIONS (2)
  - Myalgia [Unknown]
  - Muscle spasms [Unknown]
